FAERS Safety Report 8610872 (Version 7)
Quarter: 2014Q1

REPORT INFORMATION
  Report Type: Spontaneous
  Country: US (occurrence: US)
  Receive Date: 20120612
  Receipt Date: 20140211
  Transmission Date: 20141002
  Serious: Yes (Hospitalization, Other)
  Sender: FDA-Public Use
  Company Number: US-PFIZER INC-2012137343

PATIENT
  Age: 59 Year
  Sex: Female
  Weight: 57 kg

DRUGS (19)
  1. LYRICA [Suspect]
     Indication: FIBROMYALGIA
     Dosage: 75 MG, 2X/DAY
  2. LYRICA [Suspect]
     Dosage: 100 MG, 2X/DAY
  3. LYRICA [Suspect]
     Dosage: 75 MG, 3X/DAY
  4. PREMARIN [Concomitant]
     Indication: HOT FLUSH
     Dosage: 0.09 MG, 1X/DAY
     Route: 048
  5. PREMARIN [Concomitant]
     Dosage: 0.9 MG, DAILY
     Route: 048
  6. ONDANSETRON [Concomitant]
     Indication: NAUSEA
     Dosage: 4 MG, TAKE 1-2 TABS, EVERY 8 HOURS AS NEEDED
     Route: 048
  7. PREDNISONE [Concomitant]
     Indication: CHRONIC OBSTRUCTIVE PULMONARY DISEASE
     Dosage: 40 MG, AS NEEDED
     Route: 048
  8. PREDNISONE [Concomitant]
     Dosage: 40 MG, DAILY
  9. WELLBUTRIN SR [Concomitant]
     Dosage: 100 MG, 2X/DAY
     Route: 048
  10. TIOTROPIUM [Concomitant]
     Dosage: 18 UG, DAILY
  11. ACETAMINOPHEN W/HYDROCODONE BITARTRATE [Concomitant]
     Indication: PAIN
     Dosage: 5-500 MG EVERY 6 HOURS AS NEEDED
  12. OXYGEN [Concomitant]
     Dosage: 2 L, UNK
  13. PEPCID [Concomitant]
     Dosage: 20 MG, DAILY
     Route: 048
  14. FENTANYL [Concomitant]
     Dosage: 50 UG, EVERY 72 HOURS
     Route: 062
  15. NORMAL SALINE [Concomitant]
  16. SYMBICORT [Concomitant]
     Dosage: 160-4.5 MCG/ACT; 2 PUFFS 2 TIMES DAILY
  17. ALBUTEROL [Concomitant]
     Indication: WHEEZING
     Dosage: 3 ML, 4 TIMES DAILY AS NEEDED
  18. VENTOLIN [Concomitant]
     Indication: WHEEZING
     Dosage: 108 (90 BASE) MCG/ACT; 2 PUFFS EVERY 4 HOURS AS NEEDED
  19. B COMPLEX [Concomitant]
     Dosage: 1 DF, DAILY

REACTIONS (10)
  - Pneumonia [Recovered/Resolved]
  - Malaise [Not Recovered/Not Resolved]
  - Chronic obstructive pulmonary disease [Unknown]
  - Feeling abnormal [Unknown]
  - Pain [Unknown]
  - Fatigue [Not Recovered/Not Resolved]
  - Dysphonia [Not Recovered/Not Resolved]
  - Speech disorder [Not Recovered/Not Resolved]
  - Arthralgia [Unknown]
  - Nausea [Unknown]
